FAERS Safety Report 4652570-6 (Version None)
Quarter: 2005Q2

REPORT INFORMATION
  Report Type: 
  Country: None (occurrence: None)
  Receive Date: 20050502
  Receipt Date: 20050415
  Transmission Date: 20051028
  Serious: Yes (Death)
  Sender: FDA-Public Use
  Company Number: AU-2005-006066

PATIENT
  Sex: Male

DRUGS (2)
  1. FLUDARA [Suspect]
  2. MABTHERA [Concomitant]

REACTIONS (2)
  - HEPATIC FAILURE [None]
  - LIGHT CHAIN ANALYSIS ABNORMAL [None]
